FAERS Safety Report 7511731-9 (Version None)
Quarter: 2011Q2

REPORT INFORMATION
  Report Type: 
  Country: None (occurrence: None)
  Receive Date: 20110531
  Receipt Date: 20110518
  Transmission Date: 20111010
  Serious: Yes (Hospitalization, Other)
  Sender: FDA-Public Use
  Company Number: US-JNJFOC-20101207498

PATIENT
  Age: 63 Year
  Sex: Female
  Weight: 49.9 kg

DRUGS (7)
  1. IMODIUM MULTI-SYMPTOM RELIEF [Suspect]
     Indication: DIARRHOEA
     Dosage: 2 CAPLETS 3-7 TIMES A DAY
     Route: 048
     Dates: start: 20060101
  2. SANDOSTATIN [Suspect]
     Indication: SHORT-BOWEL SYNDROME
     Route: 030
     Dates: start: 20080501
  3. UNKNOWN MEDICATION [Suspect]
     Indication: SHORT-BOWEL SYNDROME
     Route: 065
  4. OCTREOTIDE ACETATE [Concomitant]
     Indication: DIARRHOEA
     Dosage: 300MCG/ 4 X PER DAY
     Dates: start: 20080501
  5. IMODIUM MULTI-SYMPTOM RELIEF [Suspect]
     Indication: SHORT-BOWEL SYNDROME
     Dosage: 2 CAPLETS 3-7 TIMES A DAY
     Route: 048
     Dates: start: 20060101
  6. SANDOSTATIN [Suspect]
     Indication: DIARRHOEA
     Route: 030
     Dates: start: 20080501
  7. QUESTRAN [Suspect]
     Indication: SHORT-BOWEL SYNDROME
     Route: 065

REACTIONS (3)
  - OVERDOSE [None]
  - COLONIC PSEUDO-OBSTRUCTION [None]
  - INAPPROPRIATE SCHEDULE OF DRUG ADMINISTRATION [None]
